FAERS Safety Report 5041560-X (Version None)
Quarter: 2006Q2

REPORT INFORMATION
  Report Type: 
  Country: None (occurrence: None)
  Receive Date: 20060627
  Receipt Date: 20060615
  Transmission Date: 20061013
  Serious: Yes (Other)
  Sender: FDA-Public Use
  Company Number: 2006075947

PATIENT
  Age: 60 Year
  Sex: Female
  Weight: 52.61 kg

DRUGS (7)
  1. LIPITOR [Suspect]
     Indication: HYPERCHOLESTEROLAEMIA
     Dosage: 40 MG (1 IN 1 D)
     Dates: start: 20060228, end: 20060518
  2. VITAMIN E [Concomitant]
  3. MULTIVITAMIN [Concomitant]
  4. PREMARIN [Concomitant]
  5. CALCIUM (CALCIUM) [Concomitant]
  6. ASPIRIN [Concomitant]
  7. ALEVE [Concomitant]

REACTIONS (2)
  - ELECTROCARDIOGRAM Q WAVES [None]
  - TROPONIN I INCREASED [None]
